FAERS Safety Report 6250707-9 (Version None)
Quarter: 2009Q2

REPORT INFORMATION
  Report Type: 
  Country: None (occurrence: None)
  Receive Date: 20090630
  Receipt Date: 20090624
  Transmission Date: 20091009
  Serious: Yes (Death, Hospitalization)
  Sender: FDA-Public Use
  Company Number: FR-CELGENEUS-056-21880-09031030

PATIENT
  Sex: Male

DRUGS (2)
  1. REVLIMID [Suspect]
     Indication: MULTIPLE MYELOMA
     Route: 048
     Dates: start: 20090210, end: 20090220
  2. REVLIMID [Suspect]
     Route: 048
     Dates: start: 20090415, end: 20090419

REACTIONS (2)
  - DEATH [None]
  - RENAL FAILURE ACUTE [None]
